FAERS Safety Report 4855118-6 (Version None)
Quarter: 2005Q4

REPORT INFORMATION
  Report Type: 
  Country: None (occurrence: None)
  Receive Date: 20051214
  Receipt Date: 20051201
  Transmission Date: 20060501
  Serious: Yes (Hospitalization, Other)
  Sender: FDA-Public Use
  Company Number: 2005163519

PATIENT
  Age: 54 Year
  Sex: Female
  Weight: 63.5036 kg

DRUGS (7)
  1. LIPITOR [Suspect]
     Indication: BLOOD CHOLESTEROL INCREASED
     Dosage: 10 MG (10 MG, 1 IN 1 D),
  2. LORTAB [Suspect]
     Indication: ILL-DEFINED DISORDER
  3. VANCOMYCIN [Suspect]
     Indication: ILL-DEFINED DISORDER
     Dates: start: 20041001
  4. CORTISONE ACETATE [Suspect]
     Indication: ILL-DEFINED DISORDER
     Dates: start: 20040101
  5. LUNESTA [Concomitant]
  6. LEXAPRO [Concomitant]
  7. ALLEGRA-D 12 HOUR [Concomitant]

REACTIONS (21)
  - ALANINE AMINOTRANSFERASE ABNORMAL [None]
  - ANXIETY [None]
  - ASPARTATE AMINOTRANSFERASE ABNORMAL [None]
  - DRUG HYPERSENSITIVITY [None]
  - FLUID RETENTION [None]
  - FURUNCLE [None]
  - GALLBLADDER DISORDER [None]
  - HEPATOMEGALY [None]
  - JAUNDICE [None]
  - NERVE COMPRESSION [None]
  - OSTEOMYELITIS [None]
  - PAIN IN EXTREMITY [None]
  - PNEUMONIA [None]
  - POST-TRAUMATIC STRESS DISORDER [None]
  - PRURITUS [None]
  - RED BLOOD CELL SEDIMENTATION RATE INCREASED [None]
  - SINUSITIS [None]
  - SKIN ULCER [None]
  - STAPHYLOCOCCAL INFECTION [None]
  - SYNOVIAL CYST [None]
  - URINARY TRACT INFECTION [None]
